FAERS Safety Report 6410193-2 (Version None)
Quarter: 2009Q4

REPORT INFORMATION
  Report Type: 
  Country: None (occurrence: None)
  Receive Date: 20091020
  Receipt Date: 20091020
  Transmission Date: 20100525
  Serious: Yes (Hospitalization)
  Sender: FDA-Public Use
  Company Number: None

PATIENT
  Age: 61 Year
  Sex: Female

DRUGS (1)
  1. FERRLECIT [Suspect]
     Dosage: 250MG IV
     Route: 042

REACTIONS (5)
  - ASTHENIA [None]
  - CYANOSIS [None]
  - HEADACHE [None]
  - PERIPHERAL COLDNESS [None]
  - PRURITUS [None]
